FAERS Safety Report 18947564 (Version 1)
Quarter: 2021Q1

REPORT INFORMATION
  Report Type: Spontaneous
  Country: US (occurrence: US)
  Receive Date: 20210226
  Receipt Date: 20210226
  Transmission Date: 20210420
  Serious: Yes (Hospitalization, Other)
  Sender: FDA-Public Use
  Company Number: US-BAYER-2021-085509

PATIENT
  Age: 64 Year
  Sex: Male

DRUGS (2)
  1. VITRAKVI [Suspect]
     Active Substance: LAROTRECTINIB
     Indication: NTRK GENE FUSION OVEREXPRESSION
  2. VITRAKVI [Suspect]
     Active Substance: LAROTRECTINIB
     Indication: NEUROENDOCRINE CARCINOMA
     Dosage: UNK
     Route: 048
     Dates: start: 201905

REACTIONS (2)
  - Infection [Not Recovered/Not Resolved]
  - Surgery [Not Recovered/Not Resolved]

NARRATIVE: CASE EVENT DATE: 20210224
